FAERS Safety Report 9745171 (Version 1)
Quarter: 2013Q4

REPORT INFORMATION
  Report Type: Spontaneous
  Country: US (occurrence: US)
  Receive Date: 20131211
  Receipt Date: 20131211
  Transmission Date: 20140711
  Serious: Yes (Other)
  Sender: FDA-Public Use
  Company Number: US-ELI_LILLY_AND_COMPANY-US201312000962

PATIENT
  Sex: Female

DRUGS (1)
  1. HUMULIN NPH [Suspect]
     Indication: DIABETES MELLITUS
     Dosage: UNK UNK, BID
     Route: 065

REACTIONS (2)
  - Retinal disorder [Not Recovered/Not Resolved]
  - Visual impairment [Not Recovered/Not Resolved]
